FAERS Safety Report 7192015-8 (Version None)
Quarter: 2010Q4

REPORT INFORMATION
  Report Type: 
  Country: None (occurrence: None)
  Receive Date: 20101223
  Receipt Date: 20101217
  Transmission Date: 20110411
  Serious: Yes (Life-Threatening, Other)
  Sender: FDA-Public Use
  Company Number: PHHY2010US63093

PATIENT
  Sex: Female

DRUGS (5)
  1. RECLAST [Suspect]
     Indication: OSTEOPOROSIS
     Dosage: 5 MG
  2. IRON [Concomitant]
     Dosage: 325 DAILY
     Route: 048
  3. ENBREL [Concomitant]
     Dosage: 60 MG WEEKLY
     Route: 030
  4. SYNTHROID [Concomitant]
     Dosage: 75 MG, QD
     Route: 048
  5. DAPSONE [Concomitant]
     Dosage: 100 MG, QD
     Route: 048

REACTIONS (7)
  - ALANINE AMINOTRANSFERASE INCREASED [None]
  - ASPARTATE AMINOTRANSFERASE INCREASED [None]
  - ASTHENIA [None]
  - FEELING ABNORMAL [None]
  - KIDNEY ENLARGEMENT [None]
  - LIVER FUNCTION TEST ABNORMAL [None]
  - NAUSEA [None]
